FAERS Safety Report 4564157-4 (Version None)
Quarter: 2005Q1

REPORT INFORMATION
  Report Type: 
  Country: None (occurrence: None)
  Receive Date: 20050126
  Receipt Date: 20050112
  Transmission Date: 20050727
  Serious: Yes (Other)
  Sender: FDA-Public Use
  Company Number: SUSI-2005-00021

PATIENT
  Age: 46 Year
  Sex: Male

DRUGS (3)
  1. PENTASA [Suspect]
     Indication: CROHN'S DISEASE
     Dosage: 1 G, DAILY, ORAL
     Route: 048
     Dates: start: 19990101, end: 19990101
  2. SYSTEMIC STEROID [Concomitant]
  3. BUDENOSIDE (BUDESONIDE) [Concomitant]

REACTIONS (8)
  - ABDOMINAL PAIN UPPER [None]
  - ANXIETY [None]
  - ASTHENIA [None]
  - DIARRHOEA [None]
  - DRUG TOLERANCE DECREASED [None]
  - DYSPNOEA [None]
  - FEAR [None]
  - NAUSEA [None]
